FAERS Safety Report 24084827 (Version 1)
Quarter: 2024Q3

REPORT INFORMATION
  Report Type: Report from Study
  Country: US (occurrence: None)
  Receive Date: 20240712
  Receipt Date: 20240712
  Transmission Date: 20241016
  Serious: Yes (Other)
  Sender: ASTRAZENECA
  Company Number: 2024A152870

PATIENT
  Age: 79 Year
  Sex: Female
  Weight: 75.8 kg

DRUGS (1)
  1. CALQUENCE [Suspect]
     Active Substance: ACALABRUTINIB
     Indication: Chronic lymphocytic leukaemia
     Route: 048
     Dates: start: 20240513

REACTIONS (3)
  - Lower limb fracture [Unknown]
  - Localised infection [Unknown]
  - White blood cell count decreased [Unknown]
